FAERS Safety Report 17294668 (Version 2)
Quarter: 2020Q1

REPORT INFORMATION
  Report Type: Spontaneous
  Country: US (occurrence: US)
  Receive Date: 20200121
  Receipt Date: 20200206
  Transmission Date: 20200409
  Serious: No
  Sender: FDA-Public Use
  Company Number: US-PFIZER INC-2020023407

PATIENT
  Age: 69 Year
  Sex: Female
  Weight: 97.51 kg

DRUGS (1)
  1. IBRANCE [Suspect]
     Active Substance: PALBOCICLIB
     Indication: BREAST CANCER FEMALE
     Dosage: 100 MG, CYCLIC [DAILY FOR 21 OUT OF 28 DAYS]
     Route: 048

REACTIONS (1)
  - Blood potassium decreased [Unknown]
